FAERS Safety Report 18737388 (Version 1)
Quarter: 2021Q1

REPORT INFORMATION
  Report Type: Spontaneous
  Country: US (occurrence: US)
  Receive Date: 20210113
  Receipt Date: 20210113
  Transmission Date: 20210419
  Serious: Yes (Other)
  Sender: FDA-Public Use
  Company Number: US-009507513-2101USA003157

PATIENT
  Age: 73 Year
  Sex: Female

DRUGS (1)
  1. KEYTRUDA [Suspect]
     Active Substance: PEMBROLIZUMAB

REACTIONS (2)
  - Cutaneous vasculitis [Unknown]
  - Glomerulonephritis rapidly progressive [Unknown]
